FAERS Safety Report 8065151-1 (Version None)
Quarter: 2012Q1

REPORT INFORMATION
  Report Type: 
  Country: None (occurrence: None)
  Receive Date: 20120124
  Receipt Date: 20120114
  Transmission Date: 20120608
  Serious: Yes (Other)
  Sender: FDA-Public Use
  Company Number: US-BAYER-2010-007905

PATIENT
  Age: 40 Year
  Sex: Female
  Weight: 72.562 kg

DRUGS (15)
  1. YASMIN [Suspect]
     Indication: PRODUCT USED FOR UNKNOWN INDICATION
     Dosage: UNK
     Dates: start: 20060101, end: 20070101
  2. ZYRTEC [Concomitant]
  3. NAPROXEN [Concomitant]
  4. YASMIN [Suspect]
     Dosage: UNK
     Dates: start: 20070124, end: 20070507
  5. ADVAIR DISKUS 100/50 [Concomitant]
  6. ASCORBIC ACID [Concomitant]
  7. YAZ [Suspect]
     Indication: PRODUCT USED FOR UNKNOWN INDICATION
     Dosage: UNK
     Dates: start: 20060101, end: 20070101
  8. YAZ [Suspect]
     Dosage: UNK
     Dates: start: 20031010
  9. YASMIN [Suspect]
     Dosage: UNK
     Dates: start: 20031010
  10. IMITREX [Concomitant]
  11. YAZ [Suspect]
     Dosage: UNK
     Dates: start: 20061025
  12. YAZ [Suspect]
     Dosage: UNK
     Dates: start: 20070124, end: 20070507
  13. ISOMETHEPTENE/DICHLORALPHENAZONE/APAP [Concomitant]
  14. LOESTRIN 1.5/30 [Concomitant]
  15. YASMIN [Suspect]
     Dosage: UNK
     Dates: start: 20061025

REACTIONS (4)
  - VENTRICULAR EXTRASYSTOLES [None]
  - PAIN [None]
  - HEART INJURY [None]
  - THROMBOSIS [None]
